FAERS Safety Report 11243643 (Version 1)
Quarter: 2015Q3

REPORT INFORMATION
  Report Type: Spontaneous
  Country: PT (occurrence: PT)
  Receive Date: 20150707
  Receipt Date: 20150707
  Transmission Date: 20151125
  Serious: Yes (Death, Hospitalization)
  Sender: FDA-Public Use
  Company Number: PT-SA-2015SA093390

PATIENT
  Age: 70 Year
  Sex: Female

DRUGS (3)
  1. GENTAMICIN. [Concomitant]
     Active Substance: GENTAMICIN
     Indication: INFECTION
  2. VANCOMYCIN [Concomitant]
     Active Substance: VANCOMYCIN
     Indication: INFECTION
  3. ENOXAPARIN SODIUM. [Suspect]
     Active Substance: ENOXAPARIN SODIUM
     Indication: ANTICOAGULANT THERAPY
     Route: 065

REACTIONS (10)
  - Peritoneal haemorrhage [Unknown]
  - Peritoneal haematoma [Unknown]
  - Shock [Fatal]
  - Hypotension [Fatal]
  - Multi-organ failure [Fatal]
  - Abdominal mass [Unknown]
  - Ascites [Unknown]
  - Abdominal pain [Unknown]
  - Abdominal wall haematoma [Unknown]
  - Haemoglobin decreased [Unknown]
